FAERS Safety Report 5326279-X (Version None)
Quarter: 2007Q2

REPORT INFORMATION
  Report Type: 
  Country: None (occurrence: None)
  Receive Date: 20070514
  Receipt Date: 20070514
  Transmission Date: 20071010
  Serious: Yes (Other)
  Sender: FDA-Public Use
  Company Number: None

PATIENT
  Age: 41 Year
  Sex: Female
  Weight: 81.6475 kg

DRUGS (2)
  1. VITAMIN B-12 [Suspect]
     Indication: WEIGHT DECREASED
     Dates: start: 20070427, end: 20070428
  2. VITAMIN B-12 [Suspect]
     Indication: WEIGHT DECREASED
     Dates: start: 20070504, end: 20070505

REACTIONS (3)
  - BLOOD CHOLESTEROL INCREASED [None]
  - LETHARGY [None]
  - SEDATION [None]
